FAERS Safety Report 10232750 (Version 2)
Quarter: 2014Q3

REPORT INFORMATION
  Report Type: Spontaneous
  Country: FR (occurrence: FR)
  Receive Date: 20140612
  Receipt Date: 20140917
  Transmission Date: 20150326
  Serious: Yes (Hospitalization)
  Sender: FDA-Public Use
  Company Number: FR-ASTRAZENECA-2014SE39921

PATIENT
  Age: 21926 Day
  Sex: Male

DRUGS (11)
  1. KIDROLASE [Concomitant]
     Active Substance: ASPARAGINASE
     Dosage: 23 000 IU (23 000 IU IN ONE CYCLE)
     Route: 042
     Dates: start: 20140516, end: 20140518
  2. OXYCONTIN [Concomitant]
     Active Substance: OXYCODONE HYDROCHLORIDE
     Dosage: 10 TO 30 MG DAILY
     Route: 048
     Dates: start: 20140515, end: 20140519
  3. CARYOLYSINE [Concomitant]
     Indication: MYCOSIS FUNGOIDES
  4. NEODEX [Concomitant]
     Active Substance: DEXAMETHASONE\NEOMYCIN
     Route: 048
     Dates: start: 20140515, end: 20140518
  5. PRIMPERAN [Concomitant]
     Active Substance: METOCLOPRAMIDE HYDROCHLORIDE
     Dosage: 30 MG ON THE 14-MAY-2014 AND THEN 60 MG DAILY (7 DAYS)
     Route: 042
     Dates: start: 20140514, end: 20140520
  6. INEXIUM [Suspect]
     Active Substance: ESOMEPRAZOLE
     Route: 048
     Dates: start: 20140514, end: 20140519
  7. METHOTREXATE(MYLAN) [Interacting]
     Active Substance: METHOTREXATE
     Indication: NON-HODGKIN^S LYMPHOMA
     Route: 042
     Dates: start: 20140515, end: 20140515
  8. ZOPHREN [Concomitant]
     Active Substance: ONDANSETRON
     Route: 042
     Dates: start: 20140515, end: 20140520
  9. INNOHEP [Concomitant]
     Active Substance: TINZAPARIN SODIUM
     Route: 058
     Dates: start: 201404, end: 20140518
  10. ZELITREX [Concomitant]
     Active Substance: VALACYCLOVIR HYDROCHLORIDE
     Route: 048
     Dates: start: 201404, end: 20140519
  11. OXYNORM [Concomitant]
     Active Substance: OXYCODONE HYDROCHLORIDE
     Dosage: 5 TO 10 MG DAILY
     Route: 048
     Dates: start: 20140515, end: 20140519

REACTIONS (6)
  - Drug interaction [Recovering/Resolving]
  - Dermatitis exfoliative [Recovering/Resolving]
  - Chemotherapeutic drug level increased [Recovering/Resolving]
  - General physical health deterioration [None]
  - Renal failure acute [Recovered/Resolved]
  - Pancytopenia [Recovering/Resolving]

NARRATIVE: CASE EVENT DATE: 20140516
